FAERS Safety Report 19021194 (Version 1)
Quarter: 2021Q1

REPORT INFORMATION
  Report Type: Spontaneous
  Country: DE (occurrence: DE)
  Receive Date: 20210317
  Receipt Date: 20210317
  Transmission Date: 20210420
  Serious: Yes (Hospitalization)
  Sender: FDA-Public Use
  Company Number: DE-TEVA-2021-DE-1890218

PATIENT
  Age: 9 Year
  Sex: Male
  Weight: 22 kg

DRUGS (10)
  1. ENALAPRIL [Concomitant]
     Active Substance: ENALAPRIL
     Indication: RENAL HYPERTENSION
     Dosage: 7.5 MILLIGRAM DAILY;
     Route: 048
     Dates: start: 202005
  2. MODIGRAF [Suspect]
     Active Substance: TACROLIMUS
     Indication: IMMUNOSUPPRESSION
     Dosage: DAILY DOSE: 5.2 MG MILLGRAM(S) EVERY DAYS 2 SEPARATED DOSES
     Route: 048
     Dates: start: 20180906, end: 20200626
  3. PREDNISOLON [Suspect]
     Active Substance: PREDNISOLONE
     Indication: RENAL TRANSPLANT
     Dosage: DAILY DOSE: 2.5 MG MILLGRAM(S) EVERY 2 DAYS
     Route: 048
     Dates: start: 20180906
  4. CELLCEPT [Suspect]
     Active Substance: MYCOPHENOLATE MOFETIL\MYCOPHENOLATE MOFETIL HYDROCHLORIDE
     Indication: IMMUNOSUPPRESSION
     Dosage: DAILY DOSE: 360 MG MILLGRAM(S) EVERY DAYS 2 SEPARATED DOSES
     Route: 048
     Dates: start: 20180906
  5. BIOCARN SIRUP [Concomitant]
     Indication: CHRONIC KIDNEY DISEASE
     Dosage: DAILY DOSE: 400 MG MILLGRAM(S) EVERY DAYS 2 SEPARATED DOSES
     Route: 048
     Dates: start: 201408
  6. B1?ASMEDIC [Concomitant]
     Indication: CHRONIC KIDNEY DISEASE
     Dosage: 150 MILLIGRAM DAILY;
     Route: 048
  7. OXYBUTYNIN. [Concomitant]
     Active Substance: OXYBUTYNIN CHLORIDE
     Dosage: DAILY DOSE: 5 MG MILLGRAM(S) EVERY DAYS 2 SEPARATED DOSES
     Route: 048
     Dates: start: 201905
  8. FERROSANOL TROPFEN 30MG/ML [Concomitant]
     Indication: NEPHROGENIC ANAEMIA
     Dosage: DAILY DOSE: 90 GTT DROP(S) EVERY DAYS 3 SEPARATED DOSES
     Route: 048
     Dates: start: 201602
  9. MAGNESIOCARD 121.4 MG [Concomitant]
     Indication: CHRONIC KIDNEY DISEASE
     Dosage: 1 DOSAGE FORMS DAILY;
     Route: 048
     Dates: start: 20180906
  10. NACL 5.85% 1 MOLAR [Concomitant]
     Indication: CHRONIC KIDNEY DISEASE
     Dosage: DAILY DOSE: 21 ML MILLILITRE(S) EVERY DAYS 3 SEPARATED DOSES:1 MOLAR
     Route: 048
     Dates: start: 201409

REACTIONS (1)
  - Pyelonephritis [Recovered/Resolved]

NARRATIVE: CASE EVENT DATE: 20200620
